FAERS Safety Report 6214095 (Version 2)
Quarter: 2012Q4

REPORT INFORMATION
  Report Type: 
  Country: US (occurrence: US)
  Receive Date: 20070112
  Receipt Date: 20121105
  Transmission Date: 20130627
  Serious: Yes (Death, Congenital Anomaly)
  Sender: FDA-Public Use
  Company Number: US-GLAXOSMITHKLINE-A0635274A

PATIENT
  Age: 0 Year
  Sex: Female

DRUGS (2)
  1. PAXIL [Suspect]
     Indication: DEPRESSION
     Route: 048
     Dates: start: 2004
  2. ZOLOFT [Suspect]
     Indication: DEPRESSION
     Route: 065
     Dates: start: 2004

REACTIONS (5)
  - Atrial septal defect [Fatal]
  - Ventricular septal defect [Unknown]
  - Cardiac failure congestive [Unknown]
  - Heart disease congenital [Unknown]
  - Foetal exposure during pregnancy [Unknown]
